FAERS Safety Report 11235208 (Version 4)
Quarter: 2017Q3

REPORT INFORMATION
  Report Type: Report from Study
  Country: US (occurrence: US)
  Receive Date: 20150702
  Receipt Date: 20170706
  Transmission Date: 20171127
  Serious: Yes (Hospitalization, Other)
  Sender: FDA-Public Use
  Company Number: PHEH2015US009444

PATIENT
  Sex: Female
  Weight: 81.63 kg

DRUGS (1)
  1. GILENYA [Suspect]
     Active Substance: FINGOLIMOD HYDROCHLORIDE
     Indication: MULTIPLE SCLEROSIS
     Dosage: 0.5 MG, QD
     Route: 048
     Dates: start: 20150226

REACTIONS (15)
  - Gait disturbance [Unknown]
  - Feeding disorder [Unknown]
  - Malaise [Unknown]
  - Asthenia [Unknown]
  - Fall [Unknown]
  - Decreased appetite [Unknown]
  - Aphasia [Unknown]
  - Loss of personal independence in daily activities [Unknown]
  - Dysgraphia [Not Recovered/Not Resolved]
  - Gait inability [Unknown]
  - Cachexia [Recovering/Resolving]
  - Eye disorder [Unknown]
  - Multiple sclerosis relapse [Unknown]
  - Dysphagia [Recovering/Resolving]
  - Weight decreased [Unknown]
